FAERS Safety Report 7084670-8 (Version None)
Quarter: 2010Q4

REPORT INFORMATION
  Report Type: 
  Country: None (occurrence: None)
  Receive Date: 20101104
  Receipt Date: 20101029
  Transmission Date: 20110411
  Serious: Yes (Other)
  Sender: FDA-Public Use
  Company Number: BR-ABBOTT-10P-020-0682218-00

PATIENT
  Sex: Male
  Weight: 77 kg

DRUGS (1)
  1. HUMIRA [Suspect]
     Indication: RHEUMATOID ARTHRITIS
     Route: 058
     Dates: start: 20100901

REACTIONS (4)
  - DRY EYE [None]
  - DRY SKIN [None]
  - PRURITUS GENERALISED [None]
  - RASH [None]
